FAERS Safety Report 5063354-1 (Version None)
Quarter: 2006Q3

REPORT INFORMATION
  Report Type: 
  Country: None (occurrence: None)
  Receive Date: 20060703
  Receipt Date: 20051117
  Transmission Date: 20061208
  Serious: No
  Sender: FDA-Public Use
  Company Number: 2005S1011203

PATIENT
  Age: 38 Year
  Sex: Male
  Weight: 61.2356 kg

DRUGS (4)
  1. CLOZAPINE [Suspect]
     Indication: PSYCHOTIC DISORDER
     Dosage: 400 MG;HS;PO
     Route: 048
     Dates: start: 20051109, end: 20051116
  2. VALPROATE SODIUM [Concomitant]
  3. QUETIAPINE FUMARATE [Concomitant]
  4. LITHIUM CARBONATE [Concomitant]

REACTIONS (2)
  - GRANULOCYTOPENIA [None]
  - LEUKOPENIA [None]
